FAERS Safety Report 6008093-5 (Version None)
Quarter: 2008Q4

REPORT INFORMATION
  Report Type: 
  Country: None (occurrence: None)
  Receive Date: 20081217
  Receipt Date: 20080819
  Transmission Date: 20090506
  Serious: No
  Sender: FDA-Public Use
  Company Number: US-ASTRAZENECA-2008UW17024

PATIENT
  Age: 80 Year
  Sex: Male
  Weight: 77.1 kg

DRUGS (6)
  1. CRESTOR [Suspect]
     Route: 048
  2. PLAVIX [Concomitant]
  3. ATENOLOL [Concomitant]
     Route: 048
  4. ASPIRIN [Concomitant]
  5. VITAMIN [Concomitant]
  6. ZETIA [Concomitant]

REACTIONS (2)
  - FEELING HOT [None]
  - PAIN IN EXTREMITY [None]
